FAERS Safety Report 8541176-4 (Version None)
Quarter: 2012Q3

REPORT INFORMATION
  Report Type: 
  Country: None (occurrence: None)
  Receive Date: 20120726
  Receipt Date: 20120717
  Transmission Date: 20120928
  Serious: Yes (Hospitalization, Other)
  Sender: FDA-Public Use
  Company Number: US-ACTELION-A-US2011-57531

PATIENT

DRUGS (3)
  1. TRACLEER [Suspect]
     Indication: PULMONARY ARTERIAL HYPERTENSION
     Dosage: UNK
     Route: 048
  2. REVATIO [Concomitant]
  3. REMODULIN [Concomitant]

REACTIONS (10)
  - FATIGUE [None]
  - MALAISE [None]
  - NIGHT SWEATS [None]
  - DYSPNOEA [None]
  - OXYGEN SATURATION ABNORMAL [None]
  - DYSPNOEA EXERTIONAL [None]
  - PULMONARY CONGESTION [None]
  - SYNCOPE [None]
  - OEDEMA PERIPHERAL [None]
  - LETHARGY [None]
